FAERS Safety Report 5175038-X (Version None)
Quarter: 2006Q4

REPORT INFORMATION
  Report Type: 
  Country: None (occurrence: None)
  Receive Date: 20061206
  Receipt Date: 20061124
  Transmission Date: 20070319
  Serious: Yes (Other)
  Sender: FDA-Public Use
  Company Number: 2006-308

PATIENT
  Age: 33 Year
  Sex: Male

DRUGS (2)
  1. CITALOPRAM HYDROBROMIDE [Suspect]
     Indication: DEPRESSION
     Dosage: 10MG PER DAY
     Dates: start: 20061016, end: 20061030
  2. SERTRALINE [Concomitant]

REACTIONS (3)
  - DYSKINESIA [None]
  - RESTLESSNESS [None]
  - SLEEP DISORDER [None]
